FAERS Safety Report 9738440 (Version 2)
Quarter: 2014Q1

REPORT INFORMATION
  Report Type: Report from Study
  Country: US (occurrence: US)
  Receive Date: 20131208
  Receipt Date: 20140102
  Transmission Date: 20141002
  Serious: Yes (Other)
  Sender: FDA-Public Use
  Company Number: US-ROCHE-1316138

PATIENT
  Sex: Male
  Weight: 79.45 kg

DRUGS (3)
  1. LUCENTIS [Suspect]
     Indication: MACULAR DEGENERATION
     Dosage: BOTH EYES
     Route: 050
  2. NORVASC [Concomitant]
     Indication: HYPERTENSION
     Route: 048
  3. SYNTHYROID [Concomitant]

REACTIONS (7)
  - Gastric cancer [Unknown]
  - Vitreous floaters [Unknown]
  - Weight decreased [Unknown]
  - Malaise [Unknown]
  - Hypoacusis [Unknown]
  - Hearing impaired [Unknown]
  - Injection site pain [Unknown]
